FAERS Safety Report 9269726 (Version 1)
Quarter: 2013Q2

REPORT INFORMATION
  Report Type: Spontaneous
  Country: US (occurrence: US)
  Receive Date: 20130503
  Receipt Date: 20130503
  Transmission Date: 20140414
  Serious: Yes (Other)
  Sender: FDA-Public Use
  Company Number: US-PFIZER INC-2013135065

PATIENT
  Age: 86 Year
  Sex: Female
  Weight: 68 kg

DRUGS (3)
  1. NORVASC [Suspect]
     Indication: HYPERTENSION
     Dosage: 10 MG, 1X/DAY
     Route: 048
  2. LIPITOR [Suspect]
     Indication: BLOOD CHOLESTEROL INCREASED
     Dosage: 20 MG, 1X/DAY
     Route: 048
  3. CELEBREX [Suspect]
     Indication: PAIN
     Dosage: 200 MG, 1X/DAY
     Route: 048

REACTIONS (1)
  - Leukaemia [Unknown]
